FAERS Safety Report 16203106 (Version 1)
Quarter: 2019Q2

REPORT INFORMATION
  Report Type: Spontaneous
  Country: JP (occurrence: JP)
  Receive Date: 20190416
  Receipt Date: 20190416
  Transmission Date: 20190711
  Serious: Yes (Hospitalization)
  Sender: FDA-Public Use
  Company Number: JP-ELI_LILLY_AND_COMPANY-JP201904006437

PATIENT
  Sex: Male

DRUGS (12)
  1. AMOXAN [Suspect]
     Active Substance: AMOXAPINE
     Dosage: 125 MG, DAILY
     Route: 048
     Dates: start: 20181029, end: 20181111
  2. DULOXETINE HYDROCHLORIDE. [Suspect]
     Active Substance: DULOXETINE HYDROCHLORIDE
     Dosage: 40 MG, DAILY
     Route: 048
     Dates: start: 20181210
  3. FLUNITRAZEPAM [Concomitant]
     Active Substance: FLUNITRAZEPAM
     Dosage: UNK
     Dates: start: 20180713
  4. LANDSEN [Concomitant]
     Active Substance: CLONAZEPAM
     Dosage: UNK
     Dates: start: 20180713, end: 20181121
  5. DULOXETINE HYDROCHLORIDE. [Suspect]
     Active Substance: DULOXETINE HYDROCHLORIDE
     Dosage: 30 MG
     Route: 048
     Dates: start: 20181126, end: 20181209
  6. ABILIFY [Suspect]
     Active Substance: ARIPIPRAZOLE
     Indication: DEPRESSION
     Dosage: 6 MG, BID
     Route: 048
     Dates: start: 20180713, end: 20190228
  7. ZOPICLONE [Concomitant]
     Active Substance: ZOPICLONE
     Dosage: UNK
     Dates: start: 20180713
  8. DULOXETINE HYDROCHLORIDE. [Suspect]
     Active Substance: DULOXETINE HYDROCHLORIDE
     Indication: PRODUCT USED FOR UNKNOWN INDICATION
     Dosage: 20 MG, DAILY
     Route: 048
     Dates: start: 20181112, end: 20181125
  9. AMOXAN [Suspect]
     Active Substance: AMOXAPINE
     Dosage: 75 MG, DAILY
     Route: 048
     Dates: start: 20180727, end: 20181022
  10. AMOXAN [Suspect]
     Active Substance: AMOXAPINE
     Indication: PRODUCT USED FOR UNKNOWN INDICATION
     Dosage: 50 MG, DAILY
     Route: 048
     Dates: start: 20180713, end: 20180726
  11. AMOXAN [Suspect]
     Active Substance: AMOXAPINE
     Dosage: 100 MG, DAILY
     Route: 048
     Dates: start: 20181023, end: 20181028
  12. AMOXAN [Suspect]
     Active Substance: AMOXAPINE
     Dosage: 75 MG, DAILY
     Route: 048
     Dates: start: 20181112, end: 20190117

REACTIONS (3)
  - Cerebral atrophy [Unknown]
  - Parkinsonism [Recovering/Resolving]
  - Chest pain [Unknown]

NARRATIVE: CASE EVENT DATE: 20181125
